FAERS Safety Report 26065426 (Version 3)
Quarter: 2025Q4

REPORT INFORMATION
  Report Type: Report from Study
  Country: EU (occurrence: EU)
  Receive Date: 20251119
  Receipt Date: 20251229
  Transmission Date: 20260117
  Serious: Yes (Other)
  Sender: ASTELLAS
  Company Number: EU-ASTELLAS-2025-AER-064031

PATIENT
  Age: 61 Year
  Sex: Male

DRUGS (11)
  1. ENFORTUMAB VEDOTIN [Suspect]
     Active Substance: ENFORTUMAB VEDOTIN
     Indication: Transitional cell carcinoma metastatic
     Dosage: DAYS 1-8-15 EVERY 28 DAYS
     Route: 042
     Dates: start: 20250225
  2. ENFORTUMAB VEDOTIN [Suspect]
     Active Substance: ENFORTUMAB VEDOTIN
     Dosage: DAYS 1-8-15 EVERY 28 DAYS
     Route: 042
     Dates: start: 20250520
  3. TAMSULOSIN [Concomitant]
     Active Substance: TAMSULOSIN
     Indication: Benign prostatic hyperplasia
     Route: 065
     Dates: start: 20250224
  4. ACETAMINOPHEN [Concomitant]
     Active Substance: ACETAMINOPHEN
     Indication: Pain
     Route: 065
     Dates: start: 20250224
  5. ATENOLOL [Concomitant]
     Active Substance: ATENOLOL
     Indication: Hypertension
     Dosage: HALF OF A TABLET PER DAY
     Route: 065
     Dates: start: 20250224
  6. ATENOLOL [Concomitant]
     Active Substance: ATENOLOL
     Indication: Dyslipidaemia
  7. FINASTERIDE [Concomitant]
     Active Substance: FINASTERIDE
     Indication: Dyslipidaemia
     Route: 065
     Dates: start: 20250224
  8. FINASTERIDE [Concomitant]
     Active Substance: FINASTERIDE
     Indication: Hypertension
  9. LOVASTATIN [Concomitant]
     Active Substance: LOVASTATIN
     Indication: Hypertension
     Route: 065
     Dates: start: 20250224
  10. LOVASTATIN [Concomitant]
     Active Substance: LOVASTATIN
     Indication: Dyslipidaemia
  11. PREGABALIN [Concomitant]
     Active Substance: PREGABALIN
     Indication: Neuropathy peripheral
     Route: 065
     Dates: start: 20250624

REACTIONS (1)
  - Bronchiolitis [Recovered/Resolved]

NARRATIVE: CASE EVENT DATE: 20250910
